FAERS Safety Report 6544512-3 (Version None)
Quarter: 2010Q1

REPORT INFORMATION
  Report Type: 
  Country: None (occurrence: None)
  Receive Date: 20100121
  Receipt Date: 20100118
  Transmission Date: 20100710
  Serious: Yes (Hospitalization)
  Sender: FDA-Public Use
  Company Number: DE-WYE-G05361110

PATIENT
  Age: 43 Year
  Sex: Female

DRUGS (3)
  1. TREVILOR [Suspect]
     Indication: BIPOLAR DISORDER
     Route: 048
     Dates: start: 20040101
  2. XIMOVAN [Concomitant]
     Route: 048
     Dates: start: 20060201
  3. ABILIFY [Interacting]
     Indication: BIPOLAR DISORDER
     Route: 048
     Dates: start: 20060206, end: 20060209

REACTIONS (2)
  - DRUG INTERACTION [None]
  - TREMOR [None]
